FAERS Safety Report 12400711 (Version 2)
Quarter: 2016Q2

REPORT INFORMATION
  Report Type: Spontaneous
  Country: US (occurrence: US)
  Receive Date: 20160525
  Receipt Date: 20160525
  Transmission Date: 20160815
  Serious: No
  Sender: FDA-Public Use
  Company Number: US-SA-2015SA093600

PATIENT
  Age: 65 Year
  Sex: Female

DRUGS (6)
  1. LANTUS SOLOSTAR [Suspect]
     Active Substance: INSULIN GLARGINE
     Indication: TYPE 2 DIABETES MELLITUS
     Dosage: DOSE CAPTURED AS UNK SHE TAKE INSULIN BID BUT DOES NOT CLARIFY HOW MUCH DOSE IN EACH INJECTION.
     Route: 065
     Dates: start: 201506
  2. LANTUS SOLOSTAR [Suspect]
     Active Substance: INSULIN GLARGINE
     Indication: TYPE 2 DIABETES MELLITUS
     Dosage: DOSE CAPTURED AS UNK SHE TAKE INSULIN BID BUT DOES NOT CLARIFY HOW MUCH DOSE IN EACH INJECTION.
     Route: 065
     Dates: start: 20150624, end: 20150624
  3. LANTUS SOLOSTAR [Suspect]
     Active Substance: INSULIN GLARGINE
     Indication: TYPE 2 DIABETES MELLITUS
     Dosage: DOSE:50 UNIT(S)
     Route: 065
  4. LEVEMIR [Concomitant]
     Active Substance: INSULIN DETEMIR
     Dosage: DOSE:65 UNIT(S)
  5. SOLOSTAR [Concomitant]
     Active Substance: DEVICE
     Indication: TYPE 2 DIABETES MELLITUS
     Dates: start: 20150621
  6. LANTUS SOLOSTAR [Suspect]
     Active Substance: INSULIN GLARGINE
     Indication: TYPE 2 DIABETES MELLITUS
     Dosage: DOSE CAPTURED AS UNK SHE TAKE INSULIN BID BUT DOES NOT CLARIFY HOW MUCH DOSE IN EACH INJECTION.
     Route: 065
     Dates: start: 20150621

REACTIONS (6)
  - Injection site reaction [Unknown]
  - Blood glucose decreased [Unknown]
  - Eye pruritus [Unknown]
  - Visual impairment [Unknown]
  - Drug administration error [Unknown]
  - Eye pain [Unknown]

NARRATIVE: CASE EVENT DATE: 201506
